FAERS Safety Report 18407421 (Version 3)
Quarter: 2022Q3

REPORT INFORMATION
  Report Type: Report from Study
  Country: US (occurrence: None)
  Receive Date: 20201021
  Receipt Date: 20220921
  Transmission Date: 20221026
  Serious: Yes (Hospitalization)
  Sender: FDA-Public Use
  Company Number: US-ROCHE-2695695

PATIENT
  Age: 37 Year
  Sex: Female
  Weight: 100.7 kg

DRUGS (1)
  1. ATEZOLIZUMAB [Suspect]
     Active Substance: ATEZOLIZUMAB
     Indication: Cervix cancer metastatic
     Dosage: MOST RECENT DOSE ADMINISTERED ON 20/JUL/2020, 31/AUG/2020
     Route: 041
     Dates: start: 20200626

REACTIONS (2)
  - Anal fistula [Recovered/Resolved]
  - Pain [Recovered/Resolved]

NARRATIVE: CASE EVENT DATE: 20200810
